FAERS Safety Report 6179145-4 (Version None)
Quarter: 2009Q2

REPORT INFORMATION
  Report Type: 
  Country: None (occurrence: None)
  Receive Date: 20090505
  Receipt Date: 20090427
  Transmission Date: 20091009
  Serious: Yes (Death, Life-Threatening)
  Sender: FDA-Public Use
  Company Number: FR-ASTRAZENECA-2001CG00421

PATIENT
  Age: 33 Year
  Sex: Female

DRUGS (1)
  1. NAROPIN [Suspect]
     Indication: ANALGESIA
     Route: 042
     Dates: start: 20010419

REACTIONS (4)
  - CARDIAC ARREST [None]
  - COMA [None]
  - CONVULSION [None]
  - MEDICATION ERROR [None]
